FAERS Safety Report 24823195 (Version 2)
Quarter: 2025Q1

REPORT INFORMATION
  Report Type: Report from Study
  Country: CA (occurrence: CA)
  Receive Date: 20250109
  Receipt Date: 20250116
  Transmission Date: 20250408
  Serious: Yes (Other)
  Sender: ROCHE
  Company Number: CA-ROCHE-10000172412

PATIENT
  Sex: Female

DRUGS (2)
  1. OCREVUS [Suspect]
     Active Substance: OCRELIZUMAB
     Indication: Relapsing-remitting multiple sclerosis
     Dosage: MORE DOSAGE INFORMATION IS 300 MG AT DAY 0 AND 14, THEN 600 MG EVERY 6 MONTHS
     Route: 042
     Dates: start: 20241126
  2. PREGABALIN [Concomitant]
     Active Substance: PREGABALIN

REACTIONS (7)
  - Hypoaesthesia [Unknown]
  - Paraesthesia [Unknown]
  - Hemiparesis [Unknown]
  - Visual acuity reduced [Unknown]
  - Confusional state [Unknown]
  - Chest pain [Unknown]
  - Progressive multifocal leukoencephalopathy [Unknown]
